FAERS Safety Report 8037244-6 (Version None)
Quarter: 2012Q1

REPORT INFORMATION
  Report Type: 
  Country: None (occurrence: None)
  Receive Date: 20120111
  Receipt Date: 20120109
  Transmission Date: 20120608
  Serious: Yes (Other)
  Sender: FDA-Public Use
  Company Number: US-PFIZER INC-2012006425

PATIENT
  Sex: Female
  Weight: 58.05 kg

DRUGS (3)
  1. CHANTIX [Suspect]
     Indication: SMOKING CESSATION THERAPY
     Dosage: 0.5 MG, DAILY
     Dates: start: 20111101
  2. HYDROCODONE [Concomitant]
     Indication: BACK PAIN
     Dosage: UNK
  3. CHANTIX [Suspect]
     Dosage: UNK
     Dates: start: 20110101, end: 20111201

REACTIONS (2)
  - MALAISE [None]
  - OROPHARYNGEAL BLISTERING [None]
